FAERS Safety Report 9463122 (Version 1)
Quarter: 2013Q3

REPORT INFORMATION
  Report Type: Spontaneous
  Country: US (occurrence: US)
  Receive Date: 20130816
  Receipt Date: 20130816
  Transmission Date: 20140515
  Serious: Yes (Hospitalization)
  Sender: FDA-Public Use
  Company Number: US-B.I. PHARMACEUTICALS,INC./RIDGEFIELD-2013-BI-24894BP

PATIENT
  Age: 77 Year
  Sex: Male
  Weight: 59 kg

DRUGS (7)
  1. PRADAXA [Suspect]
     Indication: CEREBROVASCULAR ACCIDENT PROPHYLAXIS
     Dosage: 300 MG
     Route: 048
     Dates: start: 201208
  2. PRADAXA [Suspect]
     Indication: ATRIAL FIBRILLATION
  3. NON-STEROIDAL ANTI-INFLAMMATORY DRUG [Concomitant]
     Indication: ANKYLOSING SPONDYLITIS
  4. HUMAN GROWTH HORMONE [Concomitant]
  5. LISINOPRIL [Concomitant]
     Indication: HYPERTENSION
     Dosage: 10 MG
     Route: 048
  6. TESTOSTERONE [Concomitant]
  7. LIPITOR [Concomitant]
     Indication: HYPERCHOLESTEROLAEMIA
     Dosage: 80 MG
     Route: 048

REACTIONS (2)
  - Acute myocardial infarction [Recovered/Resolved]
  - Haemoglobin decreased [Not Recovered/Not Resolved]
